FAERS Safety Report 4465413-0 (Version None)
Quarter: 2004Q4

REPORT INFORMATION
  Report Type: 
  Country: None (occurrence: None)
  Receive Date: 20041004
  Receipt Date: 20040930
  Transmission Date: 20050328
  Serious: Yes (Other)
  Sender: FDA-Public Use
  Company Number: US-GLAXOSMITHKLINE-A0527975A

PATIENT
  Age: 88 Year
  Sex: Female

DRUGS (2)
  1. ADVAIR DISKUS 100/50 [Suspect]
     Indication: ASTHMA
     Route: 055
     Dates: end: 20040918
  2. BENADRYL [Concomitant]

REACTIONS (13)
  - BONE PAIN [None]
  - EAR INFECTION [None]
  - HYPOACUSIS [None]
  - KERATOCONJUNCTIVITIS SICCA [None]
  - MYALGIA [None]
  - NAIL DISORDER [None]
  - ONYCHORRHEXIS [None]
  - PARANASAL SINUS HYPERSECRETION [None]
  - PNEUMONIA [None]
  - PRURITUS [None]
  - PRURITUS GENERALISED [None]
  - SKIN DISCOLOURATION [None]
  - TOOTHACHE [None]
